FAERS Safety Report 7235584-1 (Version None)
Quarter: 2011Q1

REPORT INFORMATION
  Report Type: 
  Country: None (occurrence: None)
  Receive Date: 20110120
  Receipt Date: 20110118
  Transmission Date: 20110831
  Serious: No
  Sender: FDA-Public Use
  Company Number: US-PFIZER INC-2011012460

PATIENT
  Sex: Female
  Weight: 79.365 kg

DRUGS (4)
  1. DIFLUCAN [Suspect]
     Indication: FUNGAL INFECTION
  2. LIPITOR [Concomitant]
     Dosage: UNK
  3. DIFLUCAN [Suspect]
     Indication: ENCEPHALITIS VIRAL
     Dosage: 200 MG, DAILY
     Route: 048
     Dates: start: 20100901, end: 20100901
  4. SYNTHROID [Concomitant]
     Dosage: UNK

REACTIONS (2)
  - DYSGEUSIA [None]
  - ALOPECIA [None]
